FAERS Safety Report 13657487 (Version 1)
Quarter: 2017Q2

REPORT INFORMATION
  Report Type: Spontaneous
  Country: AU (occurrence: AU)
  Receive Date: 20170615
  Receipt Date: 20170615
  Transmission Date: 20170830
  Serious: Yes (Other)
  Sender: FDA-Public Use
  Company Number: AU-009507513-1706AUS004417

PATIENT
  Sex: Female

DRUGS (1)
  1. GONADOTROPIN, CHORIONIC [Suspect]
     Active Substance: CHORIOGONADOTROPIN ALFA
     Indication: WEIGHT CONTROL
     Dosage: IN THE STOMACH TWICE-DAILY

REACTIONS (7)
  - Product use in unapproved indication [Unknown]
  - Product use issue [Unknown]
  - Off label use [Unknown]
  - Cerebrovascular accident [Unknown]
  - Ovarian hyperstimulation syndrome [Unknown]
  - Adverse event [Unknown]
  - Decreased appetite [Unknown]
